FAERS Safety Report 20183068 (Version 1)
Quarter: 2021Q4

REPORT INFORMATION
  Report Type: Spontaneous
  Country: US (occurrence: US)
  Receive Date: 20211214
  Receipt Date: 20211214
  Transmission Date: 20220303
  Serious: Yes (Other)
  Sender: FDA-Public Use
  Company Number: US-PFIZER INC-202101733989

PATIENT
  Age: 11 Year
  Sex: Male

DRUGS (1)
  1. SIROLIMUS [Suspect]
     Active Substance: SIROLIMUS
     Dosage: UNK
     Dates: start: 201311

REACTIONS (4)
  - Haematochezia [Unknown]
  - Gastrointestinal malformation [Unknown]
  - Lymphatic disorder [Unknown]
  - Disease progression [Unknown]
